FAERS Safety Report 5765354-2 (Version None)
Quarter: 2008Q2

REPORT INFORMATION
  Report Type: 
  Country: None (occurrence: None)
  Receive Date: 20080609
  Receipt Date: 20080609
  Transmission Date: 20081010
  Serious: No
  Sender: FDA-Public Use
  Company Number: None

PATIENT
  Sex: Female
  Weight: 87.0906 kg

DRUGS (2)
  1. IMURAN [Suspect]
     Indication: CROHN'S DISEASE
     Dosage: 175 MG  PO
     Route: 048
     Dates: start: 20060615, end: 20080606
  2. REMICADE [Suspect]
     Indication: CROHN'S DISEASE
     Dosage: 400 MG IV EVERY 7 WEEKS IV DRIP
     Route: 041
     Dates: start: 20031223, end: 20080606

REACTIONS (3)
  - ABORTION SPONTANEOUS [None]
  - DRUG EXPOSURE DURING PREGNANCY [None]
  - MATERNAL DRUGS AFFECTING FOETUS [None]
